FAERS Safety Report 7699547-4 (Version None)
Quarter: 2011Q3

REPORT INFORMATION
  Report Type: 
  Country: None (occurrence: None)
  Receive Date: 20110821
  Receipt Date: 20110816
  Transmission Date: 20111222
  Serious: Yes (Other)
  Sender: FDA-Public Use
  Company Number: US-BRISTOL-MYERS SQUIBB COMPANY-15876717

PATIENT
  Sex: Female

DRUGS (5)
  1. INSULIN GLARGINE [Suspect]
  2. ALBUTEROL SULFATE AUTOHALER [Concomitant]
  3. METFORMIN HCL [Suspect]
     Dates: start: 20020101
  4. LEVOTHYROXINE SODIUM [Concomitant]
  5. LANTUS [Concomitant]

REACTIONS (3)
  - BLOOD GLUCOSE INCREASED [None]
  - CEREBROVASCULAR ACCIDENT [None]
  - INCOHERENT [None]
